FAERS Safety Report 11800268 (Version 7)
Quarter: 2016Q2

REPORT INFORMATION
  Report Type: Report from Study
  Country: FR (occurrence: FR)
  Receive Date: 20151203
  Receipt Date: 20160513
  Transmission Date: 20160815
  Serious: Yes (Hospitalization, Other)
  Sender: FDA-Public Use
  Company Number: FR-AMGEN-FRACT2015127959

PATIENT
  Age: 56 Year
  Sex: Male
  Weight: 71 kg

DRUGS (4)
  1. TRAMETINIB [Suspect]
     Active Substance: TRAMETINIB
     Indication: PRODUCT USED FOR UNKNOWN INDICATION
     Dosage: 2 MG, UNK
     Route: 048
     Dates: start: 20150924, end: 20151119
  2. PANITUMUMAB [Suspect]
     Active Substance: PANITUMUMAB
     Dosage: 438 MG, UNK
     Route: 065
     Dates: start: 20151105, end: 20151105
  3. PANITUMUMAB [Suspect]
     Active Substance: PANITUMUMAB
     Indication: COLORECTAL CANCER
     Dosage: 438 MG, UNK
     Route: 065
     Dates: start: 20150924, end: 20150924
  4. DABRAFENIB [Suspect]
     Active Substance: DABRAFENIB
     Indication: COLORECTAL CANCER
     Dosage: 300 MG, UNK
     Route: 048
     Dates: start: 20150924, end: 20151119

REACTIONS (1)
  - Acute kidney injury [Recovered/Resolved]

NARRATIVE: CASE EVENT DATE: 20151121
